FAERS Safety Report 16860986 (Version 2)
Quarter: 2019Q4

REPORT INFORMATION
  Report Type: Spontaneous
  Country: US (occurrence: US)
  Receive Date: 20190927
  Receipt Date: 20191011
  Transmission Date: 20200122
  Serious: Yes (Life-Threatening, Hospitalization, Other)
  Sender: FDA-Public Use
  Company Number: US-EMCURE PHARMACEUTICALS LTD-2019-EPL-0820

PATIENT
  Age: 60 Year
  Sex: Male

DRUGS (2)
  1. IRINOTECAN HYDROCHLORIDE. [Suspect]
     Active Substance: IRINOTECAN HYDROCHLORIDE
     Indication: PANCREATIC CARCINOMA STAGE IV
     Dosage: THREE MONTHS AGO, LAST CHEMOTHERAPY WAS ONE WEEK PRIOR TO ADMISSION
  2. 5-FU                               /00098801/ [Suspect]
     Active Substance: FLUOROURACIL
     Indication: PANCREATIC CARCINOMA STAGE IV
     Dosage: THREE MONTHS AGO. LAST CHEMOTHERAPY WAS ONE WEEK PRIOR TO ADMISSION

REACTIONS (6)
  - Cell-mediated cytotoxicity [Recovered/Resolved]
  - Respiratory failure [Recovered/Resolved]
  - Pulmonary alveolar haemorrhage [Recovered/Resolved]
  - Pulmonary toxicity [Recovered/Resolved]
  - Hypersensitivity [Recovered/Resolved]
  - Interstitial lung disease [Recovered/Resolved]
